FAERS Safety Report 15582131 (Version 5)
Quarter: 2020Q2

REPORT INFORMATION
  Report Type: Spontaneous
  Country: US (occurrence: US)
  Receive Date: 20181105
  Receipt Date: 20200430
  Transmission Date: 20200713
  Serious: Yes (Death, Hospitalization, Other)
  Sender: FDA-Public Use
  Company Number: US-JNJFOC-20181035526

PATIENT
  Age: 48 Year
  Sex: Male

DRUGS (3)
  1. XARELTO [Suspect]
     Active Substance: RIVAROXABAN
     Indication: THROMBOSIS PROPHYLAXIS
  2. XARELTO [Suspect]
     Active Substance: RIVAROXABAN
     Indication: ATRIAL FIBRILLATION
     Route: 048
     Dates: start: 20130601, end: 20170615
  3. XARELTO [Suspect]
     Active Substance: RIVAROXABAN
     Indication: CEREBROVASCULAR ACCIDENT PROPHYLAXIS

REACTIONS (11)
  - Atrial fibrillation [Recovering/Resolving]
  - Haematemesis [Recovering/Resolving]
  - Pleural effusion [Unknown]
  - Embolism [Unknown]
  - Epistaxis [Recovering/Resolving]
  - Haemoptysis [Recovered/Resolved]
  - Cardiac sarcoidosis [Fatal]
  - Thrombosis [Unknown]
  - Hypertension [Unknown]
  - Haemorrhagic stroke [Unknown]
  - Pulmonary sarcoidosis [Fatal]

NARRATIVE: CASE EVENT DATE: 20170609
